FAERS Safety Report 10704545 (Version 1)
Quarter: 2014Q4

REPORT INFORMATION
  Report Type: Report from Study
  Country: US (occurrence: None)
  Receive Date: 20141224
  Receipt Date: 20141224
  Transmission Date: 20150529
  Serious: No
  Sender: FDA-Public Use
  Company Number: CABO-14004766

PATIENT
  Age: 59 Year
  Sex: Male
  Weight: 126.4 kg

DRUGS (9)
  1. BENAZEPRIL [Concomitant]
     Active Substance: BENAZEPRIL\BENAZEPRIL HYDROCHLORIDE
  2. IVOKANA (CANAGLIFLOZIN) [Concomitant]
  3. TAGAMET (CIMETIDINE) [Concomitant]
  4. GLIMEPIRIDE. [Concomitant]
     Active Substance: GLIMEPIRIDE
  5. COMETRIQ [Suspect]
     Active Substance: CABOZANTINIB S-MALATE
     Indication: RENAL CANCER
     Route: 048
     Dates: start: 20140909
  6. CRESTOR [Concomitant]
     Active Substance: ROSUVASTATIN CALCIUM
  7. POLYETHYLENE GLYCOL (MACROGOL) [Concomitant]
     Active Substance: POLYETHYLENE GLYCOLS
  8. PEPTO BISMOL (BISMUTH SUBSALICYLATE) [Concomitant]
  9. MILK OF MAGNESIA (MAGNESIUM HYDROXIDE) [Concomitant]

REACTIONS (16)
  - Palmar erythema [None]
  - Insomnia [None]
  - Flatulence [None]
  - Blood pressure increased [None]
  - Dysphoria [None]
  - Dyspepsia [None]
  - Rhinorrhoea [None]
  - Pain [None]
  - Faeces discoloured [None]
  - Nasal congestion [None]
  - Lower respiratory tract infection [None]
  - Abdominal distension [None]
  - Diarrhoea [None]
  - Gastric disorder [None]
  - Abdominal discomfort [None]
  - Off label use [None]
